FAERS Safety Report 8156492-8 (Version None)
Quarter: 2012Q1

REPORT INFORMATION
  Report Type: 
  Country: None (occurrence: None)
  Receive Date: 20120222
  Receipt Date: 20120214
  Transmission Date: 20120608
  Serious: Yes (Life-Threatening, Hospitalization)
  Sender: FDA-Public Use
  Company Number: US-BAYER-2011-059288

PATIENT
  Age: 28 Year
  Sex: Female

DRUGS (5)
  1. LIDOCAINE [Concomitant]
     Dosage: 4 ML, UNK
     Route: 058
     Dates: start: 20090723
  2. YASMIN [Suspect]
     Dosage: UNK
     Dates: start: 20090803
  3. YASMIN [Suspect]
     Dosage: UNK
     Dates: start: 20070109, end: 20090731
  4. IBUPROFEN TABLETS [Concomitant]
     Indication: PAIN
     Dosage: 800 MG, TID
     Route: 048
     Dates: start: 20090713, end: 20090816
  5. KENALOG [Concomitant]
     Dosage: 40MG/1ML
     Dates: start: 20090723

REACTIONS (7)
  - INJURY [None]
  - DEEP VEIN THROMBOSIS [None]
  - ANHEDONIA [None]
  - EMOTIONAL DISTRESS [None]
  - PAIN [None]
  - GENERAL PHYSICAL HEALTH DETERIORATION [None]
  - ANXIETY [None]
